FAERS Safety Report 19984973 (Version 1)
Quarter: 2021Q4

REPORT INFORMATION
  Report Type: Spontaneous
  Country: US (occurrence: US)
  Receive Date: 20211021
  Receipt Date: 20211021
  Transmission Date: 20220303
  Serious: Yes (Other)
  Sender: FDA-Public Use
  Company Number: US-MAYNE PHARMA-2021MYN000510

PATIENT

DRUGS (1)
  1. ERRIN [Suspect]
     Active Substance: NORETHINDRONE
     Indication: Contraception
     Dosage: UNK UNK, QD
     Dates: start: 202102

REACTIONS (2)
  - Ectopic pregnancy [Recovered/Resolved]
  - Drug ineffective [Unknown]

NARRATIVE: CASE EVENT DATE: 20210804
